FAERS Safety Report 12664531 (Version 1)
Quarter: 2016Q3

REPORT INFORMATION
  Report Type: Spontaneous
  Country: US (occurrence: US)
  Receive Date: 20160818
  Receipt Date: 20160818
  Transmission Date: 20161109
  Serious: No
  Sender: FDA-Public Use
  Company Number: US-PFIZER INC-2016390562

PATIENT
  Age: 5 Decade
  Weight: 86.18 kg

DRUGS (3)
  1. VENLAFAXINE HCL [Suspect]
     Active Substance: VENLAFAXINE HYDROCHLORIDE
     Indication: ANXIETY
     Dosage: 150MG CAPSULE ONE TIME DAILY BY MOUTH
     Route: 048
  2. TYLENOL [Concomitant]
     Active Substance: ACETAMINOPHEN
     Dosage: TAKES OCCASIONALLY
  3. MOTRIN [Concomitant]
     Active Substance: IBUPROFEN
     Dosage: TAKES OCCASIONALLY

REACTIONS (4)
  - Somnolence [Recovered/Resolved]
  - Lethargy [Recovered/Resolved]
  - Weight increased [Recovered/Resolved]
  - Yawning [Recovered/Resolved]
